FAERS Safety Report 13744709 (Version 3)
Quarter: 2018Q4

REPORT INFORMATION
  Report Type: Report from Study
  Country: US (occurrence: US)
  Receive Date: 20170712
  Receipt Date: 20181016
  Transmission Date: 20190204
  Serious: No
  Sender: FDA-Public Use
  Company Number: PHEH2017US021270

PATIENT
  Age: 71 Year
  Sex: Female

DRUGS (1)
  1. GILENYA [Suspect]
     Active Substance: FINGOLIMOD HYDROCHLORIDE
     Indication: MULTIPLE SCLEROSIS
     Dosage: 0.5 MG, QD
     Route: 048
     Dates: start: 20170607

REACTIONS (7)
  - Limb injury [Unknown]
  - Fall [Unknown]
  - Nausea [Unknown]
  - Amnesia [Unknown]
  - General physical health deterioration [Not Recovered/Not Resolved]
  - Dyspnoea [Unknown]
  - Speech disorder [Unknown]

NARRATIVE: CASE EVENT DATE: 2017
